FAERS Safety Report 6447569-3 (Version None)
Quarter: 2009Q4

REPORT INFORMATION
  Report Type: 
  Country: None (occurrence: None)
  Receive Date: 20091119
  Receipt Date: 20090126
  Transmission Date: 20100525
  Serious: Yes (Other)
  Sender: FDA-Public Use
  Company Number: US-AMGEN-QUU302498

PATIENT
  Sex: Female

DRUGS (16)
  1. ENBREL [Suspect]
     Indication: PSORIASIS
     Route: 058
     Dates: start: 20040907
  2. ENBREL [Suspect]
     Indication: PSORIATIC ARTHROPATHY
  3. PHENERGAN HCL [Concomitant]
  4. OMEPRAZOLE [Concomitant]
  5. LISINOPRIL [Concomitant]
  6. SIMVASTATIN [Concomitant]
  7. DARVOCET-N 100 [Concomitant]
  8. KEPPRA [Concomitant]
  9. ALLOPURINOL [Concomitant]
  10. ZYRTEC [Concomitant]
  11. LYRICA [Concomitant]
  12. AMBIEN [Concomitant]
  13. BUSPIRONE HCL [Concomitant]
  14. COUMADIN [Concomitant]
  15. HYDROXYZINE [Concomitant]
  16. LORAZEPAM [Concomitant]

REACTIONS (1)
  - SQUAMOUS CELL CARCINOMA [None]
